FAERS Safety Report 11321439 (Version 1)
Quarter: 2015Q3

REPORT INFORMATION
  Report Type: Spontaneous
  Country: US (occurrence: US)
  Receive Date: 20150729
  Receipt Date: 20150729
  Transmission Date: 20151125
  Serious: No
  Sender: FDA-Public Use
  Company Number: US-AMGEN-USASL2015073629

PATIENT
  Age: 42 Year
  Sex: Female

DRUGS (1)
  1. ENBREL [Suspect]
     Active Substance: ETANERCEPT
     Indication: PRODUCT USED FOR UNKNOWN INDICATION
     Dosage: UNK
     Route: 065
     Dates: start: 20150713

REACTIONS (8)
  - Injection site swelling [Unknown]
  - Urticaria [Unknown]
  - Local swelling [Unknown]
  - Injection site erythema [Unknown]
  - Erythema [Unknown]
  - Pruritus [Unknown]
  - Fatigue [Unknown]
  - Injection site reaction [Unknown]

NARRATIVE: CASE EVENT DATE: 201507
